FAERS Safety Report 6464456-5 (Version None)
Quarter: 2009Q4

REPORT INFORMATION
  Report Type: 
  Country: None (occurrence: None)
  Receive Date: 20091201
  Receipt Date: 20091124
  Transmission Date: 20100525
  Serious: Yes (Hospitalization, Other)
  Sender: FDA-Public Use
  Company Number: AU-AMGEN-STX335540

PATIENT
  Sex: Male

DRUGS (7)
  1. SENSIPAR [Suspect]
     Indication: HYPERPARATHYROIDISM PRIMARY
     Route: 048
  2. FOSINOPRIL SODIUM [Concomitant]
     Route: 048
     Dates: start: 19990101
  3. ATORVASTATIN [Concomitant]
     Route: 048
     Dates: start: 20020101
  4. ASPIRIN [Concomitant]
     Route: 048
     Dates: start: 20020101
  5. FUROSEMIDE [Concomitant]
     Route: 048
  6. PARACETAMOL [Concomitant]
     Route: 048
  7. TEMAZEPAM [Concomitant]
     Route: 048

REACTIONS (7)
  - DECREASED APPETITE [None]
  - DIZZINESS [None]
  - DRUG INEFFECTIVE [None]
  - HYPERCALCAEMIA [None]
  - NEPHROLITHIASIS [None]
  - RENAL COLIC [None]
  - TREATMENT NONCOMPLIANCE [None]
